FAERS Safety Report 10665548 (Version 1)
Quarter: 2014Q4

REPORT INFORMATION
  Report Type: Spontaneous
  Country: DE (occurrence: DE)
  Receive Date: 20141219
  Receipt Date: 20141219
  Transmission Date: 20150529
  Serious: Yes (Congenital Anomaly, Other)
  Sender: FDA-Public Use
  Company Number: DE-TEVA-529185GER

PATIENT
  Age: 1 Day
  Sex: Male

DRUGS (5)
  1. SERTRALINE [Suspect]
     Active Substance: SERTRALINE HYDROCHLORIDE
     Indication: DEPRESSION
     Dosage: 200 MILLIGRAM DAILY;
     Route: 064
     Dates: start: 20131006, end: 20140629
  2. DIPHENHYDRAMINE [Suspect]
     Active Substance: DIPHENHYDRAMINE
     Indication: ANXIETY DISORDER
     Dosage: 50 MILLIGRAM DAILY;
     Route: 064
     Dates: start: 20131006, end: 20140629
  3. FOLS?URE [Concomitant]
     Indication: PROPHYLAXIS OF NEURAL TUBE DEFECT
     Route: 064
  4. GABAPENTIN. [Suspect]
     Active Substance: GABAPENTIN
     Indication: RESTLESS LEGS SYNDROME
     Dosage: IN THE BEGINNING 300 MG/D, LATER UNTIL WEEK 35+3 350 MG/D THAN INCREASED TO 400 MG/D
     Route: 064
     Dates: start: 20131006, end: 20140629
  5. CEFUROXIM [Concomitant]
     Active Substance: CEFUROXIME
     Indication: INFECTION PROPHYLAXIS
     Route: 064

REACTIONS (7)
  - Temperature regulation disorder [Recovered/Resolved]
  - Feeding disorder neonatal [Recovered/Resolved]
  - Foetal growth restriction [Unknown]
  - Foetal exposure during pregnancy [Unknown]
  - Respiratory disorder neonatal [Recovered/Resolved]
  - Small for dates baby [Unknown]
  - Microcephaly [Unknown]

NARRATIVE: CASE EVENT DATE: 20140629
